FAERS Safety Report 5254617-5 (Version None)
Quarter: 2007Q1

REPORT INFORMATION
  Report Type: 
  Country: None (occurrence: None)
  Receive Date: 20070302
  Receipt Date: 20070220
  Transmission Date: 20070707
  Serious: Yes (Other)
  Sender: FDA-Public Use
  Company Number: US-PFIZER INC-2007014213

PATIENT
  Sex: Female
  Weight: 70.3 kg

DRUGS (8)
  1. CHANTIX [Suspect]
     Indication: SMOKING CESSATION THERAPY
     Route: 048
     Dates: start: 20070217, end: 20070220
  2. RISPERDAL [Concomitant]
     Route: 048
  3. KLONOPIN [Concomitant]
     Route: 048
  4. ARICEPT [Concomitant]
     Route: 048
  5. COUGH AND COLD PREPARATIONS [Concomitant]
  6. XOPENEX [Concomitant]
     Route: 055
  7. SPIRIVA [Concomitant]
     Route: 055
  8. IBUPROFEN [Concomitant]
     Route: 048

REACTIONS (8)
  - AMNESIA [None]
  - BEDRIDDEN [None]
  - FEELING ABNORMAL [None]
  - HALLUCINATION [None]
  - HYPERHIDROSIS [None]
  - NERVOUSNESS [None]
  - SOMNOLENCE [None]
  - TREMOR [None]
